FAERS Safety Report 24211254 (Version 2)
Quarter: 2024Q4

REPORT INFORMATION
  Report Type: Spontaneous
  Country: FR (occurrence: FR)
  Receive Date: 20240814
  Receipt Date: 20241127
  Transmission Date: 20250115
  Serious: Yes (Hospitalization)
  Sender: TEVA
  Company Number: None

PATIENT
  Age: 26 Year
  Sex: Female
  Weight: 61.9 kg

DRUGS (4)
  1. IBUPROFEN [Suspect]
     Active Substance: IBUPROFEN
     Indication: Pain
     Route: 048
     Dates: start: 20240213, end: 20240213
  2. CIPROFLOXACIN [Suspect]
     Active Substance: CIPROFLOXACIN
     Indication: Pyelonephritis acute
     Dosage: SCORED FILM-COATED TABLET
     Route: 048
     Dates: start: 20240213, end: 20240214
  3. DAFALGAN [Suspect]
     Active Substance: ACETAMINOPHEN
     Indication: Pyrexia
     Route: 048
     Dates: start: 20240213, end: 20240215
  4. NEXPLANON [Concomitant]
     Active Substance: ETONOGESTREL
     Indication: Intrauterine contraception
     Dosage: IMPLANT FOR SUBCUTANEOUS USE
     Route: 015

REACTIONS (1)
  - Hepatitis acute [Recovered/Resolved]

NARRATIVE: CASE EVENT DATE: 20240217
